FAERS Safety Report 24252787 (Version 2)
Quarter: 2024Q3

REPORT INFORMATION
  Report Type: Report from Study
  Country: US (occurrence: US)
  Receive Date: 20240827
  Receipt Date: 20240911
  Transmission Date: 20241016
  Serious: No
  Sender: ALEXION PHARMACEUTICALS
  Company Number: US-AstraZeneca-CH-00687759A

PATIENT
  Sex: Female

DRUGS (2)
  1. STRENSIQ [Suspect]
     Active Substance: ASFOTASE ALFA
     Indication: Product used for unknown indication
     Dosage: UNK
     Route: 065
  2. GABAPENTIN [Suspect]
     Active Substance: GABAPENTIN
     Indication: Pain
     Dosage: UNK
     Route: 065

REACTIONS (12)
  - Arthralgia [Unknown]
  - Pain in extremity [Unknown]
  - Somnolence [Unknown]
  - Stress [Unknown]
  - Alopecia [Unknown]
  - Dermatillomania [Unknown]
  - Blood thyroid stimulating hormone abnormal [Unknown]
  - Pain [Unknown]
  - 17-hydroxyprogesterone increased [Unknown]
  - Scoliosis [Unknown]
  - Cortisol abnormal [Unknown]
  - Blood test abnormal [Unknown]
